FAERS Safety Report 11150160 (Version 1)
Quarter: 2015Q2

REPORT INFORMATION
  Report Type: Spontaneous
  Country: ES (occurrence: ES)
  Receive Date: 20150529
  Receipt Date: 20150529
  Transmission Date: 20150821
  Serious: Yes (Death, Hospitalization, Other)
  Sender: FDA-Public Use
  Company Number: ES-ASTRAZENECA-2015SE52099

PATIENT
  Sex: Male

DRUGS (5)
  1. ZOLADEX [Suspect]
     Active Substance: GOSERELIN ACETATE
     Indication: PROSTATE CANCER
     Dosage: UNKNOWN DOSE, EVERY THREE MONTHS
     Route: 058
     Dates: start: 20140303
  2. ELIGARD BIANNUAL [Concomitant]
     Active Substance: LEUPROLIDE ACETATE
     Indication: PROSTATE CANCER
     Dosage: INJECTABLE
     Dates: start: 201306
  3. CASODEX [Suspect]
     Active Substance: BICALUTAMIDE
     Indication: PROSTATE CANCER
     Route: 048
     Dates: start: 201303
  4. CASODEX [Suspect]
     Active Substance: BICALUTAMIDE
     Indication: PROSTATE CANCER
     Dosage: BICALUTAMIDE, STRENGHT: 150 MILLIGRAM
     Route: 065
     Dates: start: 201311
  5. CASODEX [Suspect]
     Active Substance: BICALUTAMIDE
     Indication: PROSTATE CANCER
     Dosage: BICALUTAMIDE, STRENGHT: 50 MILLIGRAM
     Route: 065
     Dates: start: 20140303

REACTIONS (6)
  - Renal failure [Unknown]
  - Urinary retention [Unknown]
  - Death [Fatal]
  - Malignant neoplasm progression [Unknown]
  - Obstructive uropathy [Unknown]
  - Haematuria [Unknown]

NARRATIVE: CASE EVENT DATE: 20140222
